FAERS Safety Report 8313271-6 (Version None)
Quarter: 2012Q2

REPORT INFORMATION
  Report Type: 
  Country: None (occurrence: None)
  Receive Date: 20120426
  Receipt Date: 20120417
  Transmission Date: 20120825
  Serious: Yes (Life-Threatening)
  Sender: FDA-Public Use
  Company Number: FR-NOVOPROD-341001

PATIENT
  Age: 46 Year
  Sex: Male

DRUGS (10)
  1. NOVOSEVEN [Suspect]
     Dosage: 4 MG, QID
     Route: 042
     Dates: start: 20110904, end: 20110904
  2. NOVOSEVEN [Suspect]
     Dosage: 5 MG, TID
     Route: 042
     Dates: start: 20110831, end: 20110831
  3. NOVOSEVEN [Suspect]
     Dosage: 5 MG, QID
     Route: 042
     Dates: start: 20110902, end: 20110902
  4. OMEPRAZOLE [Concomitant]
     Dosage: 1000 MG, QD
     Dates: start: 20110829, end: 20110830
  5. NOVOSEVEN [Suspect]
     Dosage: 2 MG, TID
     Route: 042
     Dates: start: 20110830, end: 20110830
  6. NOVOSEVEN [Suspect]
     Dosage: 5 MG QD THEN 4 MG TID
     Route: 042
     Dates: start: 20110903, end: 20110903
  7. NOVOSEVEN [Suspect]
     Dosage: 4 MG QID AND  5 MG QD
     Route: 042
     Dates: start: 20110905, end: 20110905
  8. NOVOSEVEN [Suspect]
     Indication: SHOCK HAEMORRHAGIC
     Dosage: 5 MG,QD
     Route: 042
     Dates: start: 20110829, end: 20110829
  9. NOVOSEVEN [Suspect]
     Dosage: 5 MG, TID
     Route: 042
     Dates: start: 20110901, end: 20110901
  10. NOVOSEVEN [Suspect]
     Dosage: 5 MG, QID
     Route: 042
     Dates: start: 20110906, end: 20110906

REACTIONS (1)
  - DEEP VEIN THROMBOSIS [None]
